FAERS Safety Report 24926451 (Version 1)
Quarter: 2025Q1

REPORT INFORMATION
  Report Type: Spontaneous
  Country: US (occurrence: US)
  Receive Date: 20250205
  Receipt Date: 20250205
  Transmission Date: 20250408
  Serious: Yes (Other)
  Sender: NOVO NORDISK
  Company Number: US-NOVOPROD-1336952

PATIENT
  Sex: Female

DRUGS (2)
  1. VICTOZA [Suspect]
     Active Substance: LIRAGLUTIDE
     Indication: Product used for unknown indication
     Route: 058
     Dates: start: 2016
  2. LEVEMIR [Suspect]
     Active Substance: INSULIN DETEMIR
     Indication: Product used for unknown indication
     Route: 058
     Dates: start: 2014

REACTIONS (8)
  - Laryngeal cancer [Unknown]
  - Sjogren^s syndrome [Unknown]
  - Rotator cuff syndrome [Unknown]
  - Shoulder injury related to vaccine administration [Unknown]
  - Tendon disorder [Unknown]
  - Bursitis [Unknown]
  - Arthritis [Unknown]
  - Dysphagia [Unknown]
